FAERS Safety Report 7422104-1 (Version None)
Quarter: 2011Q2

REPORT INFORMATION
  Report Type: 
  Country: None (occurrence: None)
  Receive Date: 20110418
  Receipt Date: 20110412
  Transmission Date: 20111010
  Serious: Yes (Hospitalization, Other)
  Sender: FDA-Public Use
  Company Number: NL-ABBOTT-11P-114-0719010-00

PATIENT
  Age: 26 Year
  Sex: Male

DRUGS (3)
  1. ADALIMUMAB [Suspect]
     Indication: PSORIATIC ARTHROPATHY
     Route: 058
  2. ADALIMUMAB [Suspect]
  3. METHOTREXATE [Concomitant]
     Indication: PRODUCT USED FOR UNKNOWN INDICATION
     Dosage: 12.5 MG PER WEEK

REACTIONS (5)
  - CYANOSIS [None]
  - ANGIOPATHY [None]
  - LUPUS-LIKE SYNDROME [None]
  - DRUG SPECIFIC ANTIBODY PRESENT [None]
  - ANTIPHOSPHOLIPID ANTIBODIES POSITIVE [None]
